FAERS Safety Report 5106823-8 (Version None)
Quarter: 2006Q3

REPORT INFORMATION
  Report Type: 
  Country: None (occurrence: None)
  Receive Date: 20060731
  Receipt Date: 20051004
  Transmission Date: 20061208
  Serious: Yes (Hospitalization)
  Sender: FDA-Public Use
  Company Number: US-JNJFOC-20051001162

PATIENT
  Age: 61 Year
  Sex: Female

DRUGS (6)
  1. RISPERDAL [Suspect]
     Indication: DEPRESSION
     Dosage: 1 MG, 1 IN 1 DAY, ORAL
     Route: 048
     Dates: start: 20030101
  2. EFFEXOR [Concomitant]
  3. LITHIUM (LITHIUM) [Concomitant]
  4. REMERON [Concomitant]
  5. LISINOPRIL [Concomitant]
  6. SYNTHROID [Concomitant]

REACTIONS (1)
  - CEREBROVASCULAR ACCIDENT [None]
